FAERS Safety Report 19820679 (Version 2)
Quarter: 2021Q4

REPORT INFORMATION
  Report Type: Spontaneous
  Country: US (occurrence: US)
  Receive Date: 20210913
  Receipt Date: 20211019
  Transmission Date: 20220303
  Serious: No
  Sender: FDA-Public Use
  Company Number: US-009507513-2109USA000938

PATIENT
  Sex: Male

DRUGS (3)
  1. DULERA [Suspect]
     Active Substance: FORMOTEROL FUMARATE DIHYDRATE\MOMETASONE FUROATE
     Indication: Asthma
     Dosage: 2 PUFFS A DAY AS NEEDED
     Dates: start: 2016, end: 2021
  2. DULERA [Suspect]
     Active Substance: FORMOTEROL FUMARATE DIHYDRATE\MOMETASONE FUROATE
     Dosage: UNK
     Dates: start: 20210902
  3. PROVENTIL [Suspect]
     Active Substance: ALBUTEROL
     Indication: Asthma
     Dosage: 2 PUFFS A DAY AS NEEDED BY MOUTH
     Route: 048
     Dates: start: 2021, end: 20210901

REACTIONS (6)
  - Dysstasia [Recovered/Resolved]
  - Gait disturbance [Recovered/Resolved]
  - Dyspnoea [Recovered/Resolved]
  - Heart rate increased [Recovered/Resolved]
  - Manufacturing product shipping issue [Unknown]
  - Wrong product administered [Unknown]

NARRATIVE: CASE EVENT DATE: 20210101
